FAERS Safety Report 6650910-X (Version None)
Quarter: 2010Q1

REPORT INFORMATION
  Report Type: 
  Country: None (occurrence: None)
  Receive Date: 20100325
  Receipt Date: 20100308
  Transmission Date: 20100710
  Serious: No
  Sender: FDA-Public Use
  Company Number: US-BIOGENIDEC-2010BI008070

PATIENT
  Age: 45 Year
  Sex: Female

DRUGS (1)
  1. TYSABRI [Suspect]
     Indication: MULTIPLE SCLEROSIS
     Route: 042
     Dates: start: 20091005

REACTIONS (12)
  - ASTHENIA [None]
  - BACK PAIN [None]
  - BODY TINEA [None]
  - BONE PAIN [None]
  - CHEST PAIN [None]
  - EYE SWELLING [None]
  - GAIT DISTURBANCE [None]
  - HEADACHE [None]
  - INSOMNIA [None]
  - LUNG INFECTION [None]
  - MYALGIA [None]
  - VISUAL IMPAIRMENT [None]
